FAERS Safety Report 14143972 (Version 2)
Quarter: 2017Q4

REPORT INFORMATION
  Report Type: Spontaneous
  Country: PL (occurrence: PL)
  Receive Date: 20171031
  Receipt Date: 20171101
  Transmission Date: 20180321
  Serious: Yes (Other)
  Sender: FDA-Public Use
  Company Number: PL-ASPEN PHARMA TRADING LIMITED US-AG-2017-007243

PATIENT
  Age: 94 Year
  Sex: Female
  Weight: 64 kg

DRUGS (1)
  1. CHLORAMBUCIL [Suspect]
     Active Substance: CHLORAMBUCIL
     Indication: NON-HODGKIN^S LYMPHOMA
     Route: 048
     Dates: start: 20150313, end: 20150320

REACTIONS (1)
  - Neutropenia [Unknown]

NARRATIVE: CASE EVENT DATE: 20150413
